FAERS Safety Report 8302682-0 (Version None)
Quarter: 2012Q2

REPORT INFORMATION
  Report Type: 
  Country: None (occurrence: None)
  Receive Date: 20120420
  Receipt Date: 20120420
  Transmission Date: 20120825
  Serious: Yes (Other)
  Sender: FDA-Public Use
  Company Number: JP-ABBOTT-11P-087-0886834-00

PATIENT
  Sex: Female
  Weight: 47 kg

DRUGS (6)
  1. HUMIRA [Suspect]
     Indication: CROHN'S DISEASE
     Route: 058
     Dates: start: 20110117, end: 20110117
  2. SPIRONOLACTONE [Concomitant]
     Indication: CONGESTIVE CARDIOMYOPATHY
     Route: 048
  3. AZOSEMIDE [Concomitant]
     Indication: CONGESTIVE CARDIOMYOPATHY
     Route: 048
  4. MESALAMINE [Concomitant]
     Indication: CROHN'S DISEASE
     Route: 048
  5. CARVEDILOL [Concomitant]
     Indication: CARDIAC FAILURE
     Route: 048
  6. OMEPRAZOLE [Concomitant]
     Indication: GASTRITIS PROPHYLAXIS
     Route: 048

REACTIONS (1)
  - PANIC DISORDER [None]
